FAERS Safety Report 9422857 (Version 1)
Quarter: 2013Q3

REPORT INFORMATION
  Report Type: Spontaneous
  Country: CH (occurrence: CH)
  Receive Date: 20130726
  Receipt Date: 20130726
  Transmission Date: 20140515
  Serious: Yes (Death, Other)
  Sender: FDA-Public Use
  Company Number: CH-009507513-1307CHE013936

PATIENT
  Age: 43 Year
  Sex: Male
  Weight: 75 kg

DRUGS (2)
  1. REMERON [Suspect]
     Indication: SCHIZOAFFECTIVE DISORDER
     Dosage: 60 MG PER DAY
     Route: 048
     Dates: end: 20130418
  2. ABILIFY [Concomitant]
     Indication: SCHIZOAFFECTIVE DISORDER
     Dosage: 20 MG PER DAY
     Route: 048
     Dates: end: 20130418

REACTIONS (1)
  - Completed suicide [Fatal]
